FAERS Safety Report 4660782-0 (Version None)
Quarter: 2005Q2

REPORT INFORMATION
  Report Type: 
  Country: None (occurrence: None)
  Receive Date: 20050427
  Receipt Date: 20040503
  Transmission Date: 20051028
  Serious: Yes (Hospitalization)
  Sender: FDA-Public Use
  Company Number: US-JNJFOC-20040500598

PATIENT
  Age: 43 Year
  Sex: Male
  Weight: 68.0396 kg

DRUGS (7)
  1. ULTRAM [Suspect]
     Indication: HEADACHE
     Dosage: 4 DOSE (S), 2 IN 1 DAY, ORAL
     Route: 048
     Dates: start: 20020501
  2. ULTRAM [Suspect]
     Indication: PAIN
     Dosage: 4 DOSE (S), 2 IN 1 DAY, ORAL
     Route: 048
     Dates: start: 20020501
  3. CREON 10 (PANCREATIN) TABLETS [Concomitant]
  4. CARAFATE [Concomitant]
  5. PHENOBARBITAL TAB [Concomitant]
  6. BENADRYL (DIPHENYDRAMINE HYDROCHLORIDE) [Concomitant]
  7. PROSOM (ESTAZOLAM) [Concomitant]

REACTIONS (1)
  - CONVULSION [None]
